FAERS Safety Report 19371660 (Version 1)
Quarter: 2021Q2

REPORT INFORMATION
  Report Type: Spontaneous
  Country: US (occurrence: US)
  Receive Date: 20210603
  Receipt Date: 20210603
  Transmission Date: 20210717
  Serious: No
  Sender: FDA-Public Use
  Company Number: US-SA-2021SA181384

PATIENT
  Sex: Female

DRUGS (2)
  1. RINVOQ [Concomitant]
     Active Substance: UPADACITINIB
  2. KEVZARA [Suspect]
     Active Substance: SARILUMAB
     Indication: RHEUMATOID ARTHRITIS
     Dosage: 200 MG, QOW
     Route: 058
     Dates: start: 20210505

REACTIONS (1)
  - Arthritis [Not Recovered/Not Resolved]
